FAERS Safety Report 19533438 (Version 2)
Quarter: 2023Q2

REPORT INFORMATION
  Report Type: Spontaneous
  Country: HU (occurrence: HU)
  Receive Date: 20210713
  Receipt Date: 20230525
  Transmission Date: 20230722
  Serious: Yes (Other)
  Sender: FDA-Public Use
  Company Number: HU-ROCHE-2749934

PATIENT
  Age: 41 Year
  Sex: Female

DRUGS (8)
  1. ARIPIPRAZOLE [Suspect]
     Active Substance: ARIPIPRAZOLE
     Indication: Schizophrenia
     Dosage: 30 MILLIGRAM, QD, DAILY
     Route: 065
     Dates: start: 20100101
  2. ZIPRASIDONE [Suspect]
     Active Substance: ZIPRASIDONE
     Indication: Schizophrenia
     Dosage: 120 MILLIGRAM, QD, DAILY
     Route: 065
     Dates: start: 2012
  3. QUETIAPINE [Suspect]
     Active Substance: QUETIAPINE
     Indication: Schizophrenia
     Dosage: 120 MILLIGRAM, QD, DAILY
     Route: 065
     Dates: start: 2010
  4. CLONAZEPAM [Suspect]
     Active Substance: CLONAZEPAM
     Indication: Schizophrenia
     Dosage: UNK
     Route: 065
     Dates: start: 20100101
  5. HALOPERIDOL [Suspect]
     Active Substance: HALOPERIDOL
     Indication: Schizophrenia
     Dosage: UNK
     Route: 065
     Dates: start: 20100101
  6. BUPROPION [Suspect]
     Active Substance: BUPROPION
     Indication: Decreased activity
     Dosage: UNK
     Route: 065
  7. TRAZODONE [Suspect]
     Active Substance: TRAZODONE HYDROCHLORIDE
     Indication: Insomnia
     Dosage: UNK
     Route: 065
  8. HALOPERIDOL [Concomitant]
     Active Substance: HALOPERIDOL
     Indication: Schizophrenia
     Dosage: 1.5 MILLIGRAM, QD
     Route: 065

REACTIONS (9)
  - Psychotic disorder [Unknown]
  - Hallucination, auditory [Unknown]
  - Hallucination [Recovered/Resolved]
  - Overdose [Unknown]
  - Suicide attempt [Unknown]
  - Vomiting [Unknown]
  - Insomnia [Unknown]
  - Weight increased [Unknown]
  - Sedation [Unknown]
